FAERS Safety Report 7030928-8 (Version None)
Quarter: 2010Q4

REPORT INFORMATION
  Report Type: 
  Country: None (occurrence: None)
  Receive Date: 20101006
  Receipt Date: 20100927
  Transmission Date: 20110411
  Serious: Yes (Death)
  Sender: FDA-Public Use
  Company Number: AU-PURDUE-USA_2009_0037990

PATIENT
  Sex: Male

DRUGS (4)
  1. MS CONTIN [Suspect]
     Indication: PAIN
     Dosage: 100 MG, UNK
     Dates: start: 20020101, end: 20020625
  2. MORPHALGIN [Concomitant]
     Indication: PRODUCT USED FOR UNKNOWN INDICATION
     Dosage: UNK
     Dates: start: 20020101, end: 20020101
  3. ANTIBIOTIC                         /00259001/ [Concomitant]
     Indication: PRODUCT USED FOR UNKNOWN INDICATION
     Dosage: UNK
     Dates: start: 20020101, end: 20020101
  4. TRYPTANOL                          /00002202/ [Concomitant]
     Indication: PRODUCT USED FOR UNKNOWN INDICATION
     Dosage: UNK
     Dates: start: 20020101, end: 20020101

REACTIONS (5)
  - ASPIRATION [None]
  - FEELING ABNORMAL [None]
  - HYPERSOMNIA [None]
  - MULTIPLE DRUG OVERDOSE [None]
  - SOCIAL AVOIDANT BEHAVIOUR [None]
